FAERS Safety Report 9745654 (Version 2)
Quarter: 2014Q1

REPORT INFORMATION
  Report Type: Spontaneous
  Country: GB (occurrence: None)
  Receive Date: 20131204
  Receipt Date: 20140210
  Transmission Date: 20141002
  Serious: Yes (Hospitalization)
  Sender: FDA-Public Use
  Company Number: GB2013K4633SPO

PATIENT
  Age: 34 Year
  Sex: Female
  Weight: 99.8 kg

DRUGS (11)
  1. LANSOPRAZOLE GENERIC (LANSOPRAZOLE) UNKNOWN [Suspect]
     Indication: GASTROOESOPHAGEAL REFLUX PROPHYLAXIS
     Dosage: 30 MG, 1X PER DAY, 22 DAYS, ORAL
     Route: 048
     Dates: start: 20100907, end: 20100928
  2. DEXAMETHASONE [Suspect]
     Indication: ANTIEMETIC SUPPORTIVE CARE
     Dosage: UNK, ORAL
     Route: 048
     Dates: start: 20100907, end: 20100910
  3. DEXAMETHASONE [Suspect]
     Dosage: UNK, ORAL
     Route: 048
     Dates: start: 20100907, end: 20100910
  4. IMMUNOGLOBULIN [Suspect]
     Indication: HAEMATOLOGY TEST ABNORMAL
     Dosage: 2 DAYS,1000 MG/KG, 1X PER DAY; INTRAVENOUS
     Route: 042
     Dates: start: 20100922, end: 20100923
  5. IMMUNOGLOBULIN [Suspect]
     Indication: HAEMATOLOGY TEST ABNORMAL
     Dosage: 2 DAYS,1000 MG/KG, 1X PER DAY; INTRAVENOUS
     Route: 042
     Dates: start: 20100922, end: 20100923
  6. NORETHINDRONE [Suspect]
     Indication: PRODUCT USED FOR UNKNOWN INDICATION
     Dosage: 7 DAYS, 5 MG, 3X PER DAY; ORAL
     Route: 048
     Dates: start: 20100922, end: 20100928
  7. NPLATE (ROMIPLOSTIM) [Suspect]
     Indication: IMMUNE THROMBOCYTOPENIC PURPURA
     Dosage: 153 DAYS, 1 MG/KG, UNK; SUBCUTANEOUS
     Route: 058
     Dates: start: 20100920, end: 20100920
  8. RITUXIMAB [Suspect]
     Indication: HAEMATOLOGY TEST ABNORMAL
     Dosage: 8 DAYS, 375 MG/M2, 2X/WEEK,; INTRAVENOUS
     Route: 042
     Dates: start: 20100917, end: 20100924
  9. TRANEXAMIC ACID (TRANEXAMIC ACID) [Suspect]
     Indication: PRODUCT USED FOR UNKNOWN INDICATION
     Dosage: 7 DAYS, 1 DF, 4X PER DAY; ORAL
     Route: 048
     Dates: start: 20100922, end: 20100928
  10. IMMUNOGLOBULIN HUMANUM ANTI-D (ANTI-D (RHO) IMMUNOGLOBULIN) [Concomitant]
  11. VINCRISTINE SULFATE (VINCRISTINE) [Concomitant]

REACTIONS (14)
  - Arthralgia [None]
  - Haemorrhage [None]
  - Haemoglobin decreased [None]
  - Melaena [None]
  - Purpura [None]
  - Rash erythematous [None]
  - Rash maculo-papular [None]
  - Rectal haemorrhage [None]
  - Vaginal haemorrhage [None]
  - Blood blister [None]
  - No therapeutic response [None]
  - Red blood cell count decreased [None]
  - Haematocrit decreased [None]
  - Platelet count decreased [None]
